FAERS Safety Report 18813736 (Version 1)
Quarter: 2021Q1

REPORT INFORMATION
  Report Type: Spontaneous
  Country: US (occurrence: US)
  Receive Date: 20210201
  Receipt Date: 20210201
  Transmission Date: 20210419
  Serious: No
  Sender: FDA-Public Use
  Company Number: US-CIPLA LTD.-2020US09059

PATIENT

DRUGS (2)
  1. CARBIDOPA;LEVODOPA [Concomitant]
     Active Substance: CARBIDOPA\LEVODOPA
     Indication: PRODUCT USED FOR UNKNOWN INDICATION
     Dosage: UNK
     Route: 065
  2. GABAPENTIN. [Suspect]
     Active Substance: GABAPENTIN
     Indication: RESTLESS LEGS SYNDROME
     Dosage: 600 MILLIGRAM (TWO 300 MG CAPSULES), UNK
     Route: 065
     Dates: start: 20201127

REACTIONS (7)
  - Dizziness [Unknown]
  - Nausea [Unknown]
  - Eye pain [Unknown]
  - Off label use [Unknown]
  - Product use in unapproved indication [Unknown]
  - Headache [Unknown]
  - Coordination abnormal [Unknown]

NARRATIVE: CASE EVENT DATE: 20201127
